FAERS Safety Report 14399221 (Version 2)
Quarter: 2018Q2

REPORT INFORMATION
  Report Type: Spontaneous
  Country: US (occurrence: US)
  Receive Date: 20180117
  Receipt Date: 20180504
  Transmission Date: 20180711
  Serious: No
  Sender: FDA-Public Use
  Company Number: US-JNJFOC-20180105097

PATIENT
  Age: 82 Year
  Sex: Male
  Weight: 91.17 kg

DRUGS (8)
  1. DILT-XR [Concomitant]
     Active Substance: DILTIAZEM
     Dosage: FOR 90 DAYS
     Route: 048
     Dates: start: 20171023
  2. DILTIAZEM CD [Concomitant]
     Active Substance: DILTIAZEM
     Route: 048
     Dates: start: 20171023
  3. WARFARIN SODIUM. [Concomitant]
     Active Substance: WARFARIN SODIUM
     Dosage: FOR 90 DAYS
     Route: 048
     Dates: start: 20171128
  4. COUMADIN [Concomitant]
     Active Substance: WARFARIN SODIUM
     Route: 048
  5. ZYTIGA [Suspect]
     Active Substance: ABIRATERONE ACETATE
     Indication: HORMONE-REFRACTORY PROSTATE CANCER
     Route: 048
     Dates: start: 20170716
  6. FISH OIL [Concomitant]
     Active Substance: FISH OIL
     Route: 048
  7. PREDNISONE. [Concomitant]
     Active Substance: PREDNISONE
     Dosage: FOR 30 DAYS
     Route: 048
     Dates: start: 20171211
  8. SIMVASTATIN. [Concomitant]
     Active Substance: SIMVASTATIN
     Dosage: FOR 90 DAYS
     Route: 048
     Dates: start: 20171128

REACTIONS (3)
  - Fatigue [Unknown]
  - Laboratory test abnormal [Unknown]
  - Drug dose omission [Unknown]

NARRATIVE: CASE EVENT DATE: 2017
